FAERS Safety Report 8850173 (Version 1)
Quarter: 2012Q4

REPORT INFORMATION
  Report Type: 
  Country: FR (occurrence: FR)
  Receive Date: 20121019
  Receipt Date: 20121019
  Transmission Date: 20130627
  Serious: Yes (Life-Threatening, Hospitalization)
  Sender: FDA-Public Use
  Company Number: FR-GLAXOSMITHKLINE-B0831904A

PATIENT
  Age: 90 Year
  Sex: Male
  Weight: 72 kg

DRUGS (1)
  1. ARIXTRA [Suspect]
     Indication: DEEP VEIN THROMBOSIS
     Dosage: 7.5MG Per day
     Route: 058

REACTIONS (3)
  - Gastrointestinal haemorrhage [Unknown]
  - Shock haemorrhagic [Unknown]
  - Off label use [Unknown]
